FAERS Safety Report 24052641 (Version 2)
Quarter: 2024Q3

REPORT INFORMATION
  Report Type: Spontaneous
  Country: US (occurrence: US)
  Receive Date: 20240705
  Receipt Date: 20240806
  Transmission Date: 20241017
  Serious: Yes (Other)
  Sender: AMNEAL
  Company Number: US-AMNEAL PHARMACEUTICALS-2024-AMRX-02414

PATIENT
  Sex: Male

DRUGS (1)
  1. BACLOFEN [Suspect]
     Active Substance: BACLOFEN
     Indication: Product used for unknown indication
     Dosage: 100 MICROGRAM (2000 MCG/ML), DAILY
     Route: 037

REACTIONS (3)
  - Adverse event [Recovered/Resolved]
  - Loss of therapeutic response [Unknown]
  - Device dislocation [Unknown]
